FAERS Safety Report 7280111-6 (Version None)
Quarter: 2011Q1

REPORT INFORMATION
  Report Type: 
  Country: None (occurrence: None)
  Receive Date: 20110208
  Receipt Date: 20110131
  Transmission Date: 20110831
  Serious: Yes (Other)
  Sender: FDA-Public Use
  Company Number: NL-AMGEN-NLDSP2010008167

PATIENT
  Age: 53 Year
  Sex: Female

DRUGS (9)
  1. FOSTER                             /06206901/ [Concomitant]
     Dosage: UNK
  2. SPIRIVA [Concomitant]
     Dosage: UNK
  3. ATROVENT [Concomitant]
     Dosage: UNK
  4. METOPROLOL TARTRATE [Concomitant]
     Dosage: UNK
  5. ENBREL [Suspect]
     Dosage: UNK
     Dates: start: 20101207
  6. ATACAND [Concomitant]
     Dosage: UNK
  7. FUROSEMIDE [Concomitant]
     Dosage: UNK
  8. ARCOXIA [Concomitant]
     Dosage: UNK
     Dates: end: 20101207
  9. ENBREL [Suspect]
     Indication: ANKYLOSING SPONDYLITIS
     Dosage: 50 MG, WEEKLY
     Dates: start: 20101019, end: 20101116

REACTIONS (1)
  - THROMBOPHLEBITIS [None]
